FAERS Safety Report 6037606-2 (Version None)
Quarter: 2009Q1

REPORT INFORMATION
  Report Type: 
  Country: None (occurrence: None)
  Receive Date: 20090114
  Receipt Date: 20090108
  Transmission Date: 20090719
  Serious: Yes (Hospitalization, Other)
  Sender: FDA-Public Use
  Company Number: US-ROXANE LABORATORIES, INC.-2009-RO-00042RO

PATIENT
  Age: 35 Year
  Sex: Female

DRUGS (18)
  1. LITHIUM CARBONATE [Suspect]
     Indication: BIPOLAR DISORDER
     Dosage: 900MG
  2. LITHIUM CARBONATE [Suspect]
     Dosage: 1200MG
  3. LITHIUM CARBONATE [Suspect]
  4. CITALOPRAM HYDROBROMIDE [Suspect]
     Indication: BIPOLAR DISORDER
     Dosage: 40MG
  5. CITALOPRAM HYDROBROMIDE [Suspect]
     Dosage: 20MG
  6. CITALOPRAM HYDROBROMIDE [Suspect]
  7. LORAZEPAM [Suspect]
     Route: 030
  8. LORAZEPAM [Suspect]
     Dosage: 2MG
     Route: 048
  9. LORAZEPAM [Suspect]
  10. OLANZAPINE [Suspect]
     Route: 048
  11. OLANZAPINE [Suspect]
     Dosage: 25MG
  12. OLANZAPINE [Suspect]
  13. HALOPERIDOL [Suspect]
     Route: 030
  14. HALOPERIDOL [Suspect]
     Dosage: 10MG
     Route: 048
  15. HALOPERIDOL [Suspect]
     Dosage: 5MG
  16. BENZTROPINE [Suspect]
     Route: 030
  17. VALPROIC ACID [Suspect]
     Dosage: 1000MG
     Route: 048
  18. SERTRALINE [Suspect]
     Indication: DEPRESSION
     Dosage: 50MG

REACTIONS (3)
  - AMNESIA [None]
  - DEPRESSION [None]
  - POSTPARTUM DEPRESSION [None]
